FAERS Safety Report 18557455 (Version 2)
Quarter: 2021Q1

REPORT INFORMATION
  Report Type: Report from Study
  Country: HU (occurrence: HU)
  Receive Date: 20201129
  Receipt Date: 20210105
  Transmission Date: 20210419
  Serious: Yes (Hospitalization)
  Sender: FDA-Public Use
  Company Number: HU-ROCHE-2697647

PATIENT
  Age: 45 Year
  Sex: Female
  Weight: 64 kg

DRUGS (8)
  1. CONCOR [Concomitant]
     Active Substance: BISOPROLOL FUMARATE
     Indication: INFUSION RELATED REACTION
  2. MALTOFER FOL [Concomitant]
     Active Substance: FOLIC ACID\IRON POLYMALTOSE
     Indication: INFUSION RELATED REACTION
  3. NAB?PACLITAXEL [Suspect]
     Active Substance: PACLITAXEL
     Indication: TRIPLE NEGATIVE BREAST CANCER
     Dosage: MOST RECENT DOSE PRIOR TO SAE: 03/SEP/2020
     Route: 042
     Dates: start: 20200730
  4. CONCOR [Concomitant]
     Active Substance: BISOPROLOL FUMARATE
     Indication: TACHYCARDIA
     Dates: start: 20200730
  5. ATEZOLIZUMAB. [Suspect]
     Active Substance: ATEZOLIZUMAB
     Indication: TRIPLE NEGATIVE BREAST CANCER
     Route: 042
     Dates: start: 20200730
  6. MALTOFER FOL [Concomitant]
     Active Substance: FOLIC ACID\IRON POLYMALTOSE
     Indication: IRON DEFICIENCY
     Dates: start: 20200730
  7. CLEXANE [Concomitant]
     Active Substance: ENOXAPARIN SODIUM
     Indication: PROPHYLAXIS
     Dates: start: 20200730
  8. FERLECIT [Concomitant]
     Indication: ANAEMIA
     Dates: start: 20201005

REACTIONS (2)
  - Hypothyroidism [Recovering/Resolving]
  - Breast ulceration [Recovered/Resolved]

NARRATIVE: CASE EVENT DATE: 20200910
